FAERS Safety Report 25864455 (Version 1)
Quarter: 2025Q3

REPORT INFORMATION
  Report Type: Other
  Country: EU (occurrence: EU)
  Receive Date: 20250930
  Receipt Date: 20250930
  Transmission Date: 20251020
  Serious: Yes (Other)
  Sender: Atnahs Healthcare
  Company Number: None

PATIENT

DRUGS (1)
  1. TORADOL [Suspect]
     Active Substance: KETOROLAC TROMETHAMINE
     Indication: Back pain
     Route: 030
     Dates: start: 20250924

REACTIONS (1)
  - Dysentery [Not Recovered/Not Resolved]

NARRATIVE: CASE EVENT DATE: 20250924
